FAERS Safety Report 6726278-7 (Version None)
Quarter: 2010Q2

REPORT INFORMATION
  Report Type: 
  Country: None (occurrence: None)
  Receive Date: 20100514
  Receipt Date: 20100503
  Transmission Date: 20101027
  Serious: Yes (Other)
  Sender: FDA-Public Use
  Company Number: ES-JNJFOC-20100505058

PATIENT
  Age: 16 Year
  Sex: Male

DRUGS (5)
  1. REMICADE [Suspect]
     Indication: CROHN'S DISEASE
     Route: 042
  2. REMICADE [Suspect]
     Dosage: 4 INFUSIONS TOTAL
     Route: 042
  3. REMICADE [Suspect]
     Route: 042
  4. CORTICOSTEROIDS [Concomitant]
     Dates: start: 20090101
  5. IMMUNOSUPPRESSANTS [Concomitant]

REACTIONS (2)
  - DYSPNOEA [None]
  - INFUSION RELATED REACTION [None]
